FAERS Safety Report 11108934 (Version 1)
Quarter: 2015Q2

REPORT INFORMATION
  Report Type: Report from Study
  Country: AU (occurrence: None)
  Receive Date: 20150511
  Receipt Date: 20150511
  Transmission Date: 20150821
  Serious: Yes (Hospitalization, Other)
  Sender: FDA-Public Use
  Company Number: 2015-11218

PATIENT
  Age: 81 Year
  Sex: Female

DRUGS (2)
  1. EYLEA [Suspect]
     Active Substance: AFLIBERCEPT
     Indication: NEOVASCULAR AGE-RELATED MACULAR DEGENERATION
     Route: 031
  2. ASPRO [Suspect]
     Active Substance: ASPIRIN\SODIUM BICARBONATE

REACTIONS (6)
  - Pelvic fracture [None]
  - Transient ischaemic attack [None]
  - Head injury [None]
  - Carotid artery aneurysm [None]
  - Accident [None]
  - Gastric disorder [None]

NARRATIVE: CASE EVENT DATE: 201304
